FAERS Safety Report 18788948 (Version 1)
Quarter: 2021Q1

REPORT INFORMATION
  Report Type: Spontaneous
  Country: PL (occurrence: PL)
  Receive Date: 20210126
  Receipt Date: 20210126
  Transmission Date: 20210419
  Serious: Yes (Other)
  Sender: FDA-Public Use
  Company Number: PL-PFIZER INC-2021050011

PATIENT
  Sex: Female

DRUGS (2)
  1. LETROZOL [Suspect]
     Active Substance: LETROZOLE
  2. IBRANCE [Suspect]
     Active Substance: PALBOCICLIB
     Dosage: 125 MG; 3?WEEK TREATMENT SCHEDULE, ONE WEEK OFF

REACTIONS (3)
  - Vomiting [Unknown]
  - Pancytopenia [Recovered/Resolved]
  - Diarrhoea [Unknown]
